FAERS Safety Report 7152341-5 (Version None)
Quarter: 2010Q4

REPORT INFORMATION
  Report Type: 
  Country: None (occurrence: None)
  Receive Date: 20101213
  Receipt Date: 20101129
  Transmission Date: 20110411
  Serious: Yes (Hospitalization, Other)
  Sender: FDA-Public Use
  Company Number: US-CELGENEUS-163-21880-10091485

PATIENT
  Sex: Female
  Weight: 74.456 kg

DRUGS (30)
  1. REVLIMID [Suspect]
     Route: 048
     Dates: start: 20100526
  2. ASPIRIN [Concomitant]
     Indication: ANTICOAGULANT THERAPY
     Route: 065
  3. LORAZEPAM [Concomitant]
     Route: 065
     Dates: start: 20100504
  4. FENTANYL CITRATE [Concomitant]
     Route: 002
     Dates: start: 20100504
  5. LIDOCAINE HYDROCHLORIDE [Concomitant]
     Route: 065
     Dates: start: 20100504
  6. LOMOTIL [Concomitant]
     Dosage: 5 PILLS
     Route: 048
  7. ENALAPRIL [Concomitant]
     Route: 065
  8. LEFLUNOMIDE [Concomitant]
     Route: 065
  9. SULFASALAZINE [Concomitant]
     Route: 048
  10. HYDROXYCHLOROQUINE [Concomitant]
     Route: 065
  11. PREDNISONE [Concomitant]
     Route: 065
  12. PREDNISONE [Concomitant]
     Route: 065
  13. VYTORIN [Concomitant]
     Dosage: 10/80MG
     Route: 048
  14. SYNTHROID [Concomitant]
     Route: 065
  15. NEXIUM [Concomitant]
     Route: 065
  16. METHOTREXATE [Concomitant]
     Route: 048
  17. LYRICA [Concomitant]
     Route: 048
  18. LEVORPHANOL TARTRATE [Concomitant]
     Route: 065
  19. FOLIC ACID [Concomitant]
     Route: 065
  20. GALANTAMINE HYDROBROMIDE [Concomitant]
     Route: 065
  21. NOVOLIN 70/30 [Concomitant]
     Dosage: 70/30 25 UNITS IN THE MORNING/7 UNITS IN THE EVENING
     Route: 065
  22. LEVO-GLOBULIN [Concomitant]
     Route: 065
  23. SYMBICORT [Concomitant]
     Dosage: 160/4.5 2 INHALATIONS
     Route: 055
  24. LEVAQUIN [Concomitant]
     Route: 065
  25. TYLENOL (CAPLET) [Concomitant]
     Route: 065
  26. FISH OIL [Concomitant]
     Route: 065
  27. MULTI-VITAMINS [Concomitant]
     Route: 065
  28. FIBER CHOICE WITH CALCIUM [Concomitant]
     Route: 065
  29. PEPCID COMPLETE [Concomitant]
     Route: 065
  30. ALIGN [Concomitant]
     Route: 065

REACTIONS (5)
  - BLOOD GLUCOSE DECREASED [None]
  - DEEP VEIN THROMBOSIS [None]
  - DEHYDRATION [None]
  - DIARRHOEA [None]
  - URINARY TRACT INFECTION [None]
